FAERS Safety Report 7537743-7 (Version None)
Quarter: 2011Q2

REPORT INFORMATION
  Report Type: 
  Country: None (occurrence: None)
  Receive Date: 20110609
  Receipt Date: 20110605
  Transmission Date: 20111010
  Serious: Yes (Other)
  Sender: FDA-Public Use
  Company Number: IT-PFIZER INC-2011121777

PATIENT
  Age: 56 Year
  Sex: Male

DRUGS (3)
  1. IDARUBICIN HYDROCHLORIDE [Suspect]
     Indication: ACUTE MYELOID LEUKAEMIA
     Dosage: 24 MG, 1X/DAY
     Route: 042
     Dates: start: 20110507, end: 20110509
  2. CYTARABINE [Suspect]
     Indication: ACUTE MYELOID LEUKAEMIA
     Dosage: 400 MG, 1X/DAY
     Route: 042
     Dates: start: 20110507, end: 20110513
  3. ETOPOSIDE [Suspect]
     Indication: ACUTE MYELOID LEUKAEMIA
     Dosage: 200 MG, 1X/DAY
     Route: 042
     Dates: start: 20110507, end: 20110511

REACTIONS (2)
  - STOMATITIS [None]
  - RASH GENERALISED [None]
